FAERS Safety Report 17946581 (Version 1)
Quarter: 2020Q2

REPORT INFORMATION
  Report Type: Spontaneous
  Country: US (occurrence: US)
  Receive Date: 20200625
  Receipt Date: 20200625
  Transmission Date: 20200714
  Serious: No
  Sender: FDA-Public Use
  Company Number: US-ALKERMES INC.-ALK-2020-002555

PATIENT
  Age: 37 Year
  Sex: Male

DRUGS (1)
  1. VIVITROL [Suspect]
     Active Substance: NALTREXONE
     Indication: ALCOHOLISM
     Dosage: 380 MILLIGRAM, QMO
     Route: 030
     Dates: start: 20200602

REACTIONS (4)
  - Decreased appetite [Recovered/Resolved]
  - Dysgeusia [Unknown]
  - Pain in jaw [Unknown]
  - Toothache [Unknown]

NARRATIVE: CASE EVENT DATE: 202006
